FAERS Safety Report 9790591 (Version 1)
Quarter: 2013Q4

REPORT INFORMATION
  Report Type: Report from Study
  Country: GB (occurrence: GB)
  Receive Date: 20131231
  Receipt Date: 20131231
  Transmission Date: 20140711
  Serious: Yes (Hospitalization, Other)
  Sender: FDA-Public Use
  Company Number: GB-ABBVIE-13P-167-1182963-00

PATIENT
  Sex: Male
  Weight: 86.6 kg

DRUGS (12)
  1. RITONAVIR [Suspect]
     Indication: ANTIRETROVIRAL THERAPY
     Route: 048
     Dates: start: 20120811
  2. RITONAVIR [Suspect]
     Dosage: DOSE REDUCED
  3. CO-TRIMOXAZOLE [Concomitant]
     Indication: ANTIFUNGAL PROPHYLAXIS
     Route: 048
     Dates: start: 20120807, end: 20120911
  4. ATAZANAVIR [Concomitant]
     Indication: ANTIRETROVIRAL THERAPY
     Route: 048
     Dates: start: 20120811
  5. ATAZANAVIR [Concomitant]
     Dosage: DOSE REDUCED
  6. TRUVADA [Concomitant]
     Route: 048
     Dates: start: 20120811
  7. TRUVADA [Concomitant]
     Dosage: DOSE REDUCED
  8. DOMPERIDONE [Concomitant]
     Indication: NAUSEA
     Route: 048
     Dates: start: 20120815
  9. TINSAPARIN [Concomitant]
     Indication: THROMBOSIS PROPHYLAXIS
     Route: 058
     Dates: start: 20120809, end: 20120814
  10. TINSAPARIN [Concomitant]
     Indication: THROMBOSIS PROPHYLAXIS
  11. CYCLISINE [Concomitant]
     Indication: NAUSEA
     Route: 048
     Dates: start: 20120803, end: 20120814
  12. LOPERAMIDE [Concomitant]
     Indication: DIARRHOEA
     Route: 048
     Dates: start: 20120815, end: 20120828

REACTIONS (3)
  - Lymphadenectomy [Unknown]
  - HIV infection [Unknown]
  - Diarrhoea [Unknown]
